FAERS Safety Report 10010546 (Version 1)
Quarter: 2014Q1

REPORT INFORMATION
  Report Type: Spontaneous
  Country: US (occurrence: None)
  Receive Date: 20140313
  Receipt Date: 20140313
  Transmission Date: 20141002
  Serious: Yes (Other)
  Sender: FDA-Public Use
  Company Number: None

PATIENT
  Age: 39 Year
  Sex: Female
  Weight: 61.24 kg

DRUGS (1)
  1. NEURONTIN/KETAMINE/AMITRIPTYLINE [Suspect]
     Indication: ULNAR NEURITIS
     Dosage: PEA SIZE DAB TWICE DAILY APPLIED TO A SURFACE, USUALLY THE SKIN
     Dates: start: 20140307, end: 20140308

REACTIONS (4)
  - Crying [None]
  - Suicidal ideation [None]
  - Depression [None]
  - Product compounding quality issue [None]
